FAERS Safety Report 10648220 (Version 2)
Quarter: 2014Q4

REPORT INFORMATION
  Report Type: Not Available
  Country: DE (occurrence: DE)
  Receive Date: 20141212
  Receipt Date: 20141212
  Transmission Date: 20150529
  Serious: Yes (Death, Other)
  Sender: FDA-Public Use
  Company Number: DE-CELGENE-062-21880-13080843

PATIENT

DRUGS (4)
  1. ANTIBIOTICS [Concomitant]
     Active Substance: UNSPECIFIED INGREDIENT
     Indication: PROPHYLAXIS
     Dosage: .15 MILLIGRAM/KILOGRAM
     Route: 065
  2. MELPHALAN [Suspect]
     Active Substance: MELPHALAN
     Indication: AMYLOIDOSIS
     Route: 048
  3. REVLIMID [Suspect]
     Active Substance: LENALIDOMIDE
     Indication: AMYLOIDOSIS
     Dosage: 10 MILLIGRAM
     Route: 048
  4. DEXAMETHASONE. [Suspect]
     Active Substance: DEXAMETHASONE
     Indication: AMYLOIDOSIS
     Route: 048

REACTIONS (9)
  - Adverse event [Unknown]
  - Thrombosis [Unknown]
  - Cardiac failure [Unknown]
  - Amyloidosis [Unknown]
  - Autonomic neuropathy [Unknown]
  - Haematotoxicity [Unknown]
  - Death [Fatal]
  - Infection [Unknown]
  - Renal impairment [Unknown]
